FAERS Safety Report 5264399-9 (Version None)
Quarter: 2007Q1

REPORT INFORMATION
  Report Type: 
  Country: None (occurrence: None)
  Receive Date: 20070309
  Receipt Date: 20070226
  Transmission Date: 20070707
  Serious: Yes (Other)
  Sender: FDA-Public Use
  Company Number: CIP07000279

PATIENT
  Age: 72 Year
  Sex: Female
  Weight: 76.9 kg

DRUGS (7)
  1. ACTONEL [Suspect]
     Indication: OSTEOPOROSIS
     Dosage: 35 MG ONCE WEEKLY, ORAL
     Route: 048
     Dates: start: 20070117, end: 20070202
  2. LOTREL /01289101/ (BENAZEPRIL HYDROCHLORIDE, AMLODIPINE) [Concomitant]
  3. NEXIUM /1479302/ (ESOMEPRAZOLE MAGNESIUM) [Concomitant]
  4. ATACAND /01349502/ (CANDESARTAN CILEXETIL) [Concomitant]
  5. ATENOLOL [Concomitant]
  6. ALDOMET /00000101/ (METHYLDOPA) [Concomitant]
  7. FEMHRT [Concomitant]

REACTIONS (13)
  - ANTERIOR CHAMBER DISORDER [None]
  - BLINDNESS UNILATERAL [None]
  - CORNEAL DEPOSITS [None]
  - EYELID OEDEMA [None]
  - EYELID PTOSIS [None]
  - FALL [None]
  - HEAD INJURY [None]
  - HYPOPYON [None]
  - IRIS ADHESIONS [None]
  - IRITIS [None]
  - PHOTOPHOBIA [None]
  - PINGUECULA [None]
  - UVEITIS [None]
